FAERS Safety Report 10443958 (Version 1)
Quarter: 2014Q3

REPORT INFORMATION
  Report Type: Spontaneous
  Country: US (occurrence: US)
  Receive Date: 20140910
  Receipt Date: 20140910
  Transmission Date: 20150326
  Serious: No
  Sender: FDA-Public Use
  Company Number: US-TARO-2014P1001208

PATIENT
  Age: 92 Year
  Sex: Male
  Weight: 67.59 kg

DRUGS (15)
  1. COMBIGAN EYE DROP [Concomitant]
     Dosage: BID
  2. DIGOXIN. [Concomitant]
     Active Substance: DIGOXIN
  3. LUMIGAN 0.1% [Concomitant]
     Dosage: HS
  4. LASIX [Concomitant]
     Active Substance: FUROSEMIDE
  5. DEPAKOTE [Concomitant]
     Active Substance: DIVALPROEX SODIUM
  6. WARFARIN SODIUM TABLETS USP 4MG [Suspect]
     Active Substance: WARFARIN SODIUM
     Route: 048
     Dates: start: 2011
  7. COREG CR [Concomitant]
     Active Substance: CARVEDILOL PHOSPHATE
  8. ASPIRIN. [Concomitant]
     Active Substance: ASPIRIN
  9. VITAMIN B12 [Concomitant]
     Active Substance: CYANOCOBALAMIN
     Dosage: 1000 QD
  10. WARFARIN SODIUM TABLETS USP 3MG [Suspect]
     Active Substance: WARFARIN SODIUM
     Route: 048
     Dates: start: 2011
  11. AZOPT 1% EYE DROP [Concomitant]
     Dosage: TID
  12. DONEPEZIL [Concomitant]
     Active Substance: DONEPEZIL
  13. JANUVIA [Concomitant]
     Active Substance: SITAGLIPTIN PHOSPHATE
  14. KLOR-CON [Concomitant]
     Active Substance: POTASSIUM CHLORIDE
  15. LOSARTAN POTASSIUM. [Concomitant]
     Active Substance: LOSARTAN POTASSIUM

REACTIONS (2)
  - International normalised ratio decreased [Not Recovered/Not Resolved]
  - Muscular weakness [Unknown]

NARRATIVE: CASE EVENT DATE: 201401
